FAERS Safety Report 11253222 (Version 2)
Quarter: 2015Q3

REPORT INFORMATION
  Report Type: Spontaneous
  Country: GB (occurrence: GB)
  Receive Date: 20150709
  Receipt Date: 20150717
  Transmission Date: 20151125
  Serious: Yes (Other)
  Sender: FDA-Public Use
  Company Number: GB-ASTRAZENECA-2015SE64602

PATIENT
  Age: 48 Year
  Sex: Female

DRUGS (12)
  1. TRAMADOL. [Concomitant]
     Active Substance: TRAMADOL
     Dosage: 50 MG UP TO THREE TIMES PER DAY
  2. GLICLAZIDE [Concomitant]
     Active Substance: GLICLAZIDE
     Dosage: INCREASED TO MAXIMAL DOSES
  3. AMITRIPTYLINE [Concomitant]
     Active Substance: AMITRIPTYLINE
  4. CODIDRAMOL [Concomitant]
     Dosage: 10MG/500MG UP TO 4 TIMES PER DAY
  5. METFORMIN [Concomitant]
     Active Substance: METFORMIN HYDROCHLORIDE
     Dosage: MODIFIED RELEASED 1G ONCE DAILY
  6. METFORMIN [Concomitant]
     Active Substance: METFORMIN HYDROCHLORIDE
     Dosage: DOSE OF METFORMIN WAS INCREASED
  7. FORXIGA [Suspect]
     Active Substance: DAPAGLIFLOZIN
     Indication: TYPE 2 DIABETES MELLITUS
     Route: 048
  8. NAPROXEN. [Concomitant]
     Active Substance: NAPROXEN
  9. GLICLAZIDE [Concomitant]
     Active Substance: GLICLAZIDE
  10. EZETIMIBE. [Concomitant]
     Active Substance: EZETIMIBE
  11. METFORMIN [Concomitant]
     Active Substance: METFORMIN HYDROCHLORIDE
  12. LOSARTAN. [Concomitant]
     Active Substance: LOSARTAN

REACTIONS (7)
  - Staphylococcus test positive [Unknown]
  - Diabetic ketoacidosis [Unknown]
  - Pyelonephritis [Unknown]
  - Abdominal pain [Unknown]
  - Back pain [Unknown]
  - Intervertebral discitis [Unknown]
  - Biliary sepsis [Unknown]

NARRATIVE: CASE EVENT DATE: 201505
